FAERS Safety Report 7313998-9 (Version None)
Quarter: 2011Q1

REPORT INFORMATION
  Report Type: 
  Country: None (occurrence: None)
  Receive Date: 20110215
  Receipt Date: 20110202
  Transmission Date: 20110831
  Serious: Yes (Hospitalization, Other)
  Sender: FDA-Public Use
  Company Number: 20110100

PATIENT
  Age: 68 Year
  Sex: Female

DRUGS (5)
  1. LIDOCAINE HYDROCHLORIDE [Suspect]
     Indication: INFLAMMATION
     Dosage: W/ MARCAINE + DEXAMETHASONE INJECTION NOS
     Dates: start: 20101005, end: 20101005
  2. LIDOCAINE HYDROCHLORIDE [Suspect]
     Indication: MORTON'S NEUROMA
     Dosage: W/ MARCAINE + DEXAMETHASONE INJECTION NOS
     Dates: start: 20101005, end: 20101005
  3. MARCAINE [Suspect]
     Indication: NEUROMA
     Dosage: W/LIDOCAINE, DEXAMETHASONE INJECTION NOS
     Dates: start: 20101005, end: 20101005
  4. DEXAMETHASONE SODIUM PHOSPHATE [Suspect]
     Indication: INFLAMMATION
     Dosage: 4 MG W/LIDOCAINE + MARCAINE INJECTION NOS
     Dates: start: 20101005, end: 20101005
  5. DEXAMETHASONE SODIUM PHOSPHATE [Suspect]
     Indication: MORTON'S NEUROMA
     Dosage: 4 MG W/LIDOCAINE + MARCAINE INJECTION NOS
     Dates: start: 20101005, end: 20101005

REACTIONS (5)
  - INJECTION SITE PAIN [None]
  - INJECTION SITE ERYTHEMA [None]
  - INJECTION SITE OEDEMA [None]
  - INJECTION SITE WARMTH [None]
  - NO THERAPEUTIC RESPONSE [None]
